FAERS Safety Report 20924125 (Version 2)
Quarter: 2022Q3

REPORT INFORMATION
  Report Type: Spontaneous
  Country: RU (occurrence: RU)
  Receive Date: 20220607
  Receipt Date: 20220728
  Transmission Date: 20221026
  Serious: Yes (Death, Other)
  Sender: FDA-Public Use
  Company Number: RU-PFIZER INC-202200768153

PATIENT
  Age: 16 Month
  Sex: Male

DRUGS (8)
  1. RITUXIMAB [Suspect]
     Active Substance: RITUXIMAB
     Dosage: UNK
  2. TREOSULFAN [Suspect]
     Active Substance: TREOSULFAN
  3. FLUDARABINE [Suspect]
     Active Substance: FLUDARABINE PHOSPHATE
  4. THIOTEPA [Suspect]
     Active Substance: THIOTEPA
  5. THYMOCYTE IMMUNE GLOBULIN NOS [Suspect]
     Active Substance: THYMOCYTE IMMUNE GLOBULIN NOS
  6. CYCLOSPORINE [Suspect]
     Active Substance: CYCLOSPORINE
     Dosage: UNK
  7. CYCLOPHOSPHAMIDE [Suspect]
     Active Substance: CYCLOPHOSPHAMIDE
  8. MELPHALAN [Suspect]
     Active Substance: MELPHALAN

REACTIONS (5)
  - Infection [Fatal]
  - Enterocolitis [Unknown]
  - Clostridium difficile colitis [Unknown]
  - Viraemia [Unknown]
  - Viral infection [Unknown]
